FAERS Safety Report 6198378-4 (Version None)
Quarter: 2009Q2

REPORT INFORMATION
  Report Type: 
  Country: None (occurrence: None)
  Receive Date: 20090521
  Receipt Date: 20090512
  Transmission Date: 20091009
  Serious: Yes (Hospitalization)
  Sender: FDA-Public Use
  Company Number: GB-WYE-H09313809

PATIENT
  Age: 69 Year
  Sex: Male

DRUGS (3)
  1. TIGECYCLINE [Suspect]
     Indication: CARDIAC VALVE VEGETATION
     Dosage: UNKNOWN
     Route: 042
     Dates: start: 20070101, end: 20070101
  2. TIGECYCLINE [Suspect]
     Indication: ALCALIGENES INFECTION
  3. TIGECYCLINE [Suspect]
     Indication: BACTERAEMIA

REACTIONS (1)
  - DRUG RESISTANCE [None]
